FAERS Safety Report 17327815 (Version 1)
Quarter: 2020Q1

REPORT INFORMATION
  Report Type: Spontaneous
  Country: SE (occurrence: SE)
  Receive Date: 20200127
  Receipt Date: 20200127
  Transmission Date: 20200409
  Serious: Yes (Hospitalization)
  Sender: FDA-Public Use
  Company Number: SE-MYLANLABS-2020M1008946

PATIENT
  Age: 45 Year
  Sex: Female

DRUGS (2)
  1. OXASCAND [Suspect]
     Active Substance: OXAZEPAM
     Indication: PRODUCT USED FOR UNKNOWN INDICATION
     Dosage: 160 MILLIGRAM
     Route: 048
     Dates: start: 20181009, end: 20181009
  2. LERGIGAN (PROMETHAZINE HYDROCHLORIDE) [Suspect]
     Active Substance: PROMETHAZINE HYDROCHLORIDE
     Indication: PRODUCT USED FOR UNKNOWN INDICATION
     Dosage: 25 MG OCH 50 MG, OK?ND M?NGD
     Route: 048
     Dates: start: 20181009, end: 20181009

REACTIONS (7)
  - Intentional self-injury [Unknown]
  - Mydriasis [Unknown]
  - Intentional overdose [Unknown]
  - Coordination abnormal [Unknown]
  - Lethargy [Unknown]
  - Pupillary reflex impaired [Unknown]
  - Nystagmus [Unknown]

NARRATIVE: CASE EVENT DATE: 20181009
